FAERS Safety Report 22147573 (Version 1)
Quarter: 2023Q1

REPORT INFORMATION
  Report Type: Spontaneous
  Country: GB (occurrence: GB)
  Receive Date: 20230328
  Receipt Date: 20230328
  Transmission Date: 20230418
  Serious: Yes (Other)
  Sender: FDA-Public Use
  Company Number: GB-MHRA-MED-202303170911232520-GDYZN

PATIENT
  Age: 34 Year
  Sex: Male
  Weight: 51 kg

DRUGS (2)
  1. PULMOZYME [Suspect]
     Active Substance: DORNASE ALFA
     Indication: Adverse drug reaction
     Route: 065
     Dates: start: 20230315, end: 20230315
  2. ALTEPLASE [Suspect]
     Active Substance: ALTEPLASE
     Indication: Empyema
     Route: 034
     Dates: start: 20230315, end: 20230315

REACTIONS (1)
  - Wheezing [Recovered/Resolved]

NARRATIVE: CASE EVENT DATE: 20230315
